FAERS Safety Report 4596127-4 (Version None)
Quarter: 2005Q1

REPORT INFORMATION
  Report Type: 
  Country: None (occurrence: None)
  Receive Date: 20050225
  Receipt Date: 20050214
  Transmission Date: 20050727
  Serious: Yes (Hospitalization)
  Sender: FDA-Public Use
  Company Number: 2005-BP-02238RO

PATIENT
  Age: 41 Year
  Sex: Female

DRUGS (6)
  1. METHOTREXATE [Suspect]
     Indication: RHEUMATOID ARTHRITIS
     Dosage: 20 MG/WEEK - DIVIDED DOSE
  2. ROFECOXIB [Suspect]
  3. MEDROXYPROGESTERONE [Concomitant]
  4. LEVOFLOXACIN [Concomitant]
  5. PIRBUTEROL     (PIRBUTEROL) [Concomitant]
  6. VITAMIN B12 [Concomitant]

REACTIONS (28)
  - ANTINUCLEAR ANTIBODY POSITIVE [None]
  - ARTHROPATHY [None]
  - BLOOD ALBUMIN DECREASED [None]
  - BLOOD CALCIUM DECREASED [None]
  - BLOOD CHLORIDE INCREASED [None]
  - BONE MARROW DEPRESSION [None]
  - CHEST X-RAY ABNORMAL [None]
  - CHILLS [None]
  - DEFORMITY [None]
  - DRUG CLEARANCE DECREASED [None]
  - DRUG INTERACTION [None]
  - DRUG TOXICITY [None]
  - EPSTEIN-BARR VIRUS INFECTION [None]
  - ERYTHEMA MULTIFORME [None]
  - HEPATOSPLENOMEGALY [None]
  - IMMUNOSUPPRESSION [None]
  - LABORATORY TEST ABNORMAL [None]
  - LEUKOCYTOCLASTIC VASCULITIS [None]
  - LYMPHADENOPATHY [None]
  - LYMPHOPROLIFERATIVE DISORDER [None]
  - OEDEMA PERIPHERAL [None]
  - PANCYTOPENIA [None]
  - PYREXIA [None]
  - RALES [None]
  - RED BLOOD CELL SEDIMENTATION RATE INCREASED [None]
  - SYNOVITIS [None]
  - THERAPY NON-RESPONDER [None]
  - THROMBIN TIME PROLONGED [None]
